FAERS Safety Report 9885862 (Version 2)
Quarter: 2014Q1

REPORT INFORMATION
  Report Type: Spontaneous
  Country: US (occurrence: US)
  Receive Date: 20140210
  Receipt Date: 20140310
  Transmission Date: 20141002
  Serious: Yes (Hospitalization, Other)
  Sender: FDA-Public Use
  Company Number: US-PFIZER INC-2014033423

PATIENT
  Age: 78 Year
  Sex: Female
  Weight: 48.87 kg

DRUGS (14)
  1. BOSULIF [Suspect]
     Indication: CHRONIC MYELOID LEUKAEMIA
     Dosage: 500 MG, 1X/DAY
     Route: 048
     Dates: start: 20131119, end: 20140110
  2. BOSULIF [Suspect]
     Dosage: 300 MG, 1X/DAY
     Route: 048
     Dates: start: 20140123, end: 20140206
  3. CYTARABINE [Concomitant]
     Dosage: 20 MG/ML, UNK
  4. SPRYCEL [Concomitant]
     Dosage: 50 MG, UNK
  5. AMLODIPINE [Concomitant]
     Dosage: 5 MG, UNK
  6. ASPIR-81 [Concomitant]
     Dosage: 81 MG, UNK
  7. CALCIUM 600 [Concomitant]
     Dosage: 600 MG, (1500 MG) UNK
  8. LASIX [Concomitant]
     Dosage: 40 MG, UNK
  9. HYDROCHLOROTHIAZIDE [Concomitant]
     Dosage: 25 MG, UNK
  10. KLOR-CON M10 [Concomitant]
     Dosage: M10, UNK
  11. PROCRIT [Concomitant]
     Dosage: 20000 IU/ML, UNK
  12. TYLENOL EXTRA-STRENGTH [Concomitant]
     Dosage: 500 MG, UNK
  13. VITAMIN B-12 [Concomitant]
     Dosage: 1000 UG/ML, UNK
  14. VITAMIN D3 [Concomitant]
     Dosage: 1000 IU, UNK

REACTIONS (12)
  - Pleural effusion [Unknown]
  - Dyspnoea [Recovering/Resolving]
  - Pneumonia [Unknown]
  - Pleuritic pain [Unknown]
  - Anaemia [Unknown]
  - Nephropathy [Unknown]
  - Pollakiuria [Unknown]
  - Vision blurred [Recovered/Resolved]
  - Diarrhoea [Recovered/Resolved]
  - Fatigue [Unknown]
  - Disease progression [Unknown]
  - Chronic myeloid leukaemia [Unknown]
